FAERS Safety Report 9321853 (Version 1)
Quarter: 2013Q2

REPORT INFORMATION
  Report Type: Spontaneous
  Country: US (occurrence: US)
  Receive Date: 20130531
  Receipt Date: 20130531
  Transmission Date: 20140414
  Serious: No
  Sender: FDA-Public Use
  Company Number: US-ABBOTT-13P-163-1053733-00

PATIENT
  Age: 50 Year
  Sex: Male
  Weight: 65.83 kg

DRUGS (1)
  1. MARINOL [Suspect]
     Indication: DECREASED APPETITE
     Dates: start: 1993, end: 201212

REACTIONS (2)
  - Weight decreased [Not Recovered/Not Resolved]
  - Decreased appetite [Not Recovered/Not Resolved]
